FAERS Safety Report 4396080-2 (Version None)
Quarter: 2004Q2

REPORT INFORMATION
  Report Type: 
  Country: None (occurrence: None)
  Receive Date: 20040621
  Receipt Date: 20031125
  Transmission Date: 20050107
  Serious: Yes (Death)
  Sender: FDA-Public Use
  Company Number: USA-2003-0011077

PATIENT
  Sex: Male
  Weight: 55.8 kg

DRUGS (8)
  1. OXYCODONE HCL [Suspect]
  2. HYDROCODONE BITARTRATE [Suspect]
  3. METHADONE HCL [Suspect]
  4. ERYTHROMYCIN [Suspect]
  5. AMITRIPTYLINE HCL [Suspect]
  6. OXYMORPHONE HYDROCHLORIDE [Suspect]
  7. CAFFEINE (CAFFEINE) [Suspect]
  8. NICOTINE [Suspect]

REACTIONS (2)
  - ACCIDENTAL OVERDOSE [None]
  - MULTIPLE DRUG OVERDOSE [None]
